FAERS Safety Report 15371469 (Version 2)
Quarter: 2018Q4

REPORT INFORMATION
  Report Type: Spontaneous
  Country: US (occurrence: US)
  Receive Date: 20180911
  Receipt Date: 20181011
  Transmission Date: 20190204
  Serious: Yes (Death)
  Sender: FDA-Public Use
  Company Number: US-TASMAN PHARMA, INC.-2018TSM00082

PATIENT
  Age: 74 Year
  Sex: Male
  Weight: 69.84 kg

DRUGS (1)
  1. CLOZAPINE. [Suspect]
     Active Substance: CLOZAPINE
     Indication: SCHIZOPHRENIA
     Dosage: 150 MG, 1X/DAY
     Route: 048

REACTIONS (2)
  - Dementia [Fatal]
  - Death [Fatal]

NARRATIVE: CASE EVENT DATE: 20171014
